FAERS Safety Report 21517413 (Version 1)
Quarter: 2022Q4

REPORT INFORMATION
  Report Type: Spontaneous
  Country: US (occurrence: US)
  Receive Date: 20221028
  Receipt Date: 20221028
  Transmission Date: 20230113
  Serious: No
  Sender: FDA-Public Use
  Company Number: US-HORIZON THERAPEUTICS-HZN-2021-009541

PATIENT

DRUGS (2)
  1. KRYSTEXXA [Suspect]
     Active Substance: PEGLOTICASE
     Indication: Product used for unknown indication
     Dosage: 8 MG
     Route: 042
  2. KRYSTEXXA [Suspect]
     Active Substance: PEGLOTICASE
     Dosage: 8 MG (SECOND INFUSION)
     Route: 042

REACTIONS (2)
  - Pain [Unknown]
  - Muscle spasms [Unknown]
